FAERS Safety Report 14268509 (Version 2)
Quarter: 2017Q4

REPORT INFORMATION
  Report Type: Spontaneous
  Country: CN (occurrence: CN)
  Receive Date: 20171211
  Receipt Date: 20171215
  Transmission Date: 20180321
  Serious: Yes (Life-Threatening, Hospitalization)
  Sender: FDA-Public Use
  Company Number: CN-PFIZER INC-2017527230

PATIENT
  Age: 66 Year
  Sex: Female

DRUGS (4)
  1. CORDARONE [Suspect]
     Active Substance: AMIODARONE HYDROCHLORIDE
     Indication: EXTRASYSTOLES
     Dosage: 200 MG, 1X/DAY
     Route: 048
     Dates: start: 20170618, end: 20171002
  2. BETALOC [Suspect]
     Active Substance: METOPROLOL TARTRATE
     Dosage: 47.5 MG, 1X/DAY
     Route: 048
     Dates: start: 20170508
  3. BETALOC [Suspect]
     Active Substance: METOPROLOL TARTRATE
     Indication: CONGESTIVE CARDIOMYOPATHY
     Dosage: 23.75 MG, 1X/DAY
     Route: 048
     Dates: start: 20160820, end: 20170508
  4. KE LI (DIGOXIN) [Suspect]
     Active Substance: DIGOXIN
     Indication: CONGESTIVE CARDIOMYOPATHY
     Dosage: 0.125 MG, 1X/DAY
     Route: 048
     Dates: start: 20160820, end: 20171002

REACTIONS (4)
  - Sinus bradycardia [Recovering/Resolving]
  - Dyspnoea [Unknown]
  - Chest discomfort [Unknown]
  - Condition aggravated [Unknown]

NARRATIVE: CASE EVENT DATE: 20171003
